FAERS Safety Report 8438239 (Version 2)
Quarter: 2013Q4

REPORT INFORMATION
  Report Type: Spontaneous
  Country: US (occurrence: US)
  Receive Date: 20120302
  Receipt Date: 20131216
  Transmission Date: 20140711
  Serious: Yes (Other)
  Sender: FDA-Public Use
  Company Number: US-GLAXOSMITHKLINE-A0967657A

PATIENT
  Age: 61 Year
  Sex: Female
  Weight: 81.8 kg

DRUGS (14)
  1. TYKERB [Suspect]
     Indication: BREAST CANCER
     Route: 048
     Dates: start: 20110119
  2. NEXIUM [Concomitant]
  3. AMBIEN [Concomitant]
  4. AMERGE [Concomitant]
  5. SEROQUEL [Concomitant]
  6. INDERAL [Concomitant]
  7. LEXAPRO [Concomitant]
  8. ZYPREXA [Concomitant]
  9. AVEENO CREAM [Concomitant]
  10. DOXEPIN HCL [Concomitant]
  11. PROPRANOLOL [Concomitant]
  12. NAMENDA [Concomitant]
  13. ZOMETA [Concomitant]
  14. HERCEPTIN [Concomitant]

REACTIONS (8)
  - Rectal haemorrhage [Not Recovered/Not Resolved]
  - Rash [Unknown]
  - Diarrhoea [Unknown]
  - Anorectal discomfort [Unknown]
  - Skin fissures [Unknown]
  - Nail disorder [Unknown]
  - Erythema [Unknown]
  - Rash pruritic [Recovered/Resolved]
